FAERS Safety Report 7458053-2 (Version None)
Quarter: 2011Q2

REPORT INFORMATION
  Report Type: 
  Country: None (occurrence: None)
  Receive Date: 20110504
  Receipt Date: 20110427
  Transmission Date: 20111010
  Serious: Yes (Hospitalization, Other)
  Sender: FDA-Public Use
  Company Number: FR-PFIZER INC-2011090583

PATIENT
  Age: 27 Year
  Sex: Female

DRUGS (3)
  1. NORDETTE-21 [Suspect]
     Dosage: UNK MG, UNK
     Route: 048
     Dates: end: 20101221
  2. IMUREL [Suspect]
     Dosage: 125 MG, UNK
     Route: 048
     Dates: end: 20101221
  3. TIMOLOL [Concomitant]
     Route: 047

REACTIONS (1)
  - HISTIOCYTOSIS HAEMATOPHAGIC [None]
